FAERS Safety Report 5906585-8 (Version None)
Quarter: 2008Q4

REPORT INFORMATION
  Report Type: 
  Country: None (occurrence: None)
  Receive Date: 20081002
  Receipt Date: 20080922
  Transmission Date: 20090506
  Serious: Yes (Other)
  Sender: FDA-Public Use
  Company Number: DE-ELI_LILLY_AND_COMPANY-DE200807003566

PATIENT
  Sex: Male
  Weight: 80 kg

DRUGS (6)
  1. BYETTA [Suspect]
     Indication: DIABETES MELLITUS
     Dosage: UNK, UNKNOWN
     Route: 065
  2. BYETTA [Suspect]
     Dosage: 10 UG, UNKNOWN
     Route: 058
     Dates: start: 20070901, end: 20071001
  3. BYETTA [Suspect]
     Dosage: 20 UG, DAILY (1/D)
     Route: 058
     Dates: start: 20071001, end: 20080701
  4. LORZAAR [Concomitant]
     Indication: HYPERTENSION
     Dosage: UNK, UNKNOWN
     Route: 048
  5. GLURENORM [Concomitant]
     Indication: DIABETES MELLITUS
     Dosage: 1 D/F, UNKNOWN
     Route: 048
  6. PLAVIX [Concomitant]
     Indication: CORONARY ARTERY DISEASE
     Dosage: 1 D/F, UNKNOWN
     Route: 048

REACTIONS (3)
  - PANCREATITIS [None]
  - RENAL FAILURE [None]
  - WEIGHT DECREASED [None]
